FAERS Safety Report 6072895-X (Version None)
Quarter: 2009Q1

REPORT INFORMATION
  Report Type: 
  Country: None (occurrence: None)
  Receive Date: 20090205
  Receipt Date: 20090202
  Transmission Date: 20090719
  Serious: Yes (Hospitalization)
  Sender: FDA-Public Use
  Company Number: 08P-229-0491101-00

PATIENT
  Age: 1 Month
  Sex: Male

DRUGS (5)
  1. SYNAGIS [Suspect]
     Indication: ANTIVIRAL PROPHYLAXIS
     Dosage: -4.5 MG   (15 MG/KG)
     Route: 030
     Dates: start: 20081127
  2. SIMVASTATIN [Concomitant]
  3. NASAL CPAP (NASAL CPAP) [Concomitant]
  4. ROOM AIR (ROOM AIR) [Concomitant]
  5. IPRATROPIUM BROMIDE [Concomitant]

REACTIONS (8)
  - ACUTE RESPIRATORY DISTRESS SYNDROME [None]
  - BRONCHIOLITIS [None]
  - GRUNTING [None]
  - INTERCOSTAL RETRACTION [None]
  - RESPIRATORY DISTRESS [None]
  - RESPIRATORY SYNCYTIAL VIRUS INFECTION [None]
  - RHINORRHOEA [None]
  - WHEEZING [None]
